FAERS Safety Report 24541333 (Version 2)
Quarter: 2024Q4

REPORT INFORMATION
  Report Type: Spontaneous
  Country: US (occurrence: US)
  Receive Date: 20241023
  Receipt Date: 20241106
  Transmission Date: 20250114
  Serious: Yes (Other)
  Sender: AVADEL CNS PHARMACEUTICALS, LLC
  Company Number: US-AVADEL CNS PHARMACEUTICALS, LLC-2024AVA01902

PATIENT
  Sex: Male
  Weight: 105.67 kg

DRUGS (10)
  1. LUMRYZ [Suspect]
     Active Substance: SODIUM OXYBATE
     Indication: Narcolepsy
     Dosage: 6 G, ONCE NIGHTLY, AROUND 2-3 AM
     Route: 048
     Dates: start: 20240913, end: 202409
  2. LUMRYZ [Suspect]
     Active Substance: SODIUM OXYBATE
     Indication: Cataplexy
  3. LUMRYZ [Suspect]
     Active Substance: SODIUM OXYBATE
     Indication: Nightmare
  4. LUMRYZ [Suspect]
     Active Substance: SODIUM OXYBATE
     Indication: Narcolepsy
     Dosage: 4.5 G, ONCE NIGHTLY, AROUND 2-3 AM
     Route: 048
     Dates: start: 202409, end: 202410
  5. LUMRYZ [Suspect]
     Active Substance: SODIUM OXYBATE
     Indication: Cataplexy
  6. LUMRYZ [Suspect]
     Active Substance: SODIUM OXYBATE
     Indication: Nightmare
  7. WAKIX [Concomitant]
     Active Substance: PITOLISANT HYDROCHLORIDE
  8. UNSPECIFIED MEDICATIONS FOR BLOOD PRESSURE [Concomitant]
  9. FINASTERIDE [Concomitant]
     Active Substance: FINASTERIDE
  10. HYDROXYZINE [Concomitant]
     Active Substance: HYDROXYZINE HYDROCHLORIDE

REACTIONS (9)
  - Loss of consciousness [Unknown]
  - Weight increased [Unknown]
  - Lymphoedema [Unknown]
  - Fatigue [Unknown]
  - Nightmare [Recovering/Resolving]
  - Insomnia [Unknown]
  - Depression [Unknown]
  - Enuresis [Unknown]
  - Intentional dose omission [Unknown]

NARRATIVE: CASE EVENT DATE: 20240101
